FAERS Safety Report 16216754 (Version 2)
Quarter: 2019Q2

REPORT INFORMATION
  Report Type: Spontaneous
  Country: HU (occurrence: HU)
  Receive Date: 20190419
  Receipt Date: 20190504
  Transmission Date: 20190711
  Serious: Yes (Other)
  Sender: FDA-Public Use
  Company Number: PHHY2019HU088600

PATIENT
  Sex: Female

DRUGS (3)
  1. PROCORALAN [Concomitant]
     Active Substance: IVABRADINE
     Indication: PRODUCT USED FOR UNKNOWN INDICATION
     Dosage: UNK
     Route: 065
  2. ENTRESTO [Suspect]
     Active Substance: SACUBITRIL\VALSARTAN
     Dosage: 100 MG (49/51 MG), UNK
     Route: 065
     Dates: start: 201903
  3. ENTRESTO [Suspect]
     Active Substance: SACUBITRIL\VALSARTAN
     Indication: CARDIAC FAILURE
     Dosage: 50 MG (24/26 MG), UNK
     Route: 065
     Dates: start: 201902, end: 201903

REACTIONS (7)
  - Hypothyroidism [Unknown]
  - Hypotension [Unknown]
  - Hepatic enzyme increased [Recovering/Resolving]
  - Cardiac failure [Recovering/Resolving]
  - N-terminal prohormone brain natriuretic peptide decreased [Unknown]
  - Liver injury [Unknown]
  - Autoimmune thyroiditis [Unknown]
